FAERS Safety Report 21649846 (Version 2)
Quarter: 2022Q4

REPORT INFORMATION
  Report Type: Spontaneous
  Country: JP (occurrence: JP)
  Receive Date: 20221128
  Receipt Date: 20221215
  Transmission Date: 20230113
  Serious: Yes (Hospitalization)
  Sender: FDA-Public Use
  Company Number: JP-TEVA-2022-JP-2828249

PATIENT
  Age: 72 Year
  Sex: Male

DRUGS (2)
  1. ATORVASTATIN [Suspect]
     Active Substance: ATORVASTATIN
     Indication: Hyperlipidaemia
     Dosage: 2.5 MILLIGRAM DAILY;
     Route: 065
  2. EVOLOCUMAB [Suspect]
     Active Substance: EVOLOCUMAB
     Indication: Coronary artery disease
     Dosage: 140MG ONCE A MONTH
     Route: 065

REACTIONS (7)
  - Myalgia [Unknown]
  - Immune thrombocytopenia [Recovered/Resolved]
  - Gingival bleeding [Recovered/Resolved]
  - Epistaxis [Recovered/Resolved]
  - Ocular hyperaemia [Recovered/Resolved]
  - Mucosal haemorrhage [Recovered/Resolved]
  - Anaemia [Recovered/Resolved]
